FAERS Safety Report 7713655-0 (Version None)
Quarter: 2011Q3

REPORT INFORMATION
  Report Type: 
  Country: None (occurrence: None)
  Receive Date: 20110826
  Receipt Date: 20110822
  Transmission Date: 20111222
  Serious: Yes (Disabling)
  Sender: FDA-Public Use
  Company Number: PHHY2011DK68464

PATIENT
  Sex: Male

DRUGS (11)
  1. FUROSEMIDE [Concomitant]
     Route: 065
  2. POTASSIUM CHLORIDE [Concomitant]
     Route: 065
  3. ENALAPRIL MALEATE [Concomitant]
  4. METFORMIN HCL [Suspect]
     Route: 065
  5. CRESTOR [Suspect]
     Route: 065
  6. MAGNYL [Concomitant]
     Route: 065
  7. INSULATARD NPH HUMAN [Concomitant]
     Route: 065
  8. CRESTOR [Suspect]
     Route: 048
  9. METFORMIN HCL [Suspect]
     Route: 065
  10. ONGLYZA [Suspect]
     Indication: TYPE 2 DIABETES MELLITUS
     Dosage: 5 MG, QD
     Route: 048
     Dates: start: 20101110, end: 20101204
  11. DIGOXIN [Concomitant]

REACTIONS (4)
  - DISCOMFORT [None]
  - WEIGHT INCREASED [None]
  - HEADACHE [None]
  - FLUID RETENTION [None]
